FAERS Safety Report 4541881-0 (Version None)
Quarter: 2004Q4

REPORT INFORMATION
  Report Type: 
  Country: None (occurrence: None)
  Receive Date: 20041227
  Receipt Date: 20041220
  Transmission Date: 20050328
  Serious: Yes (Hospitalization)
  Sender: FDA-Public Use
  Company Number: 210740

PATIENT
  Age: 56 Year
  Sex: Female

DRUGS (5)
  1. HERCEPTIN [Suspect]
     Indication: BREAST CANCER
     Dosage: INTRAVENOUS
     Route: 042
  2. TAXOTERE [Concomitant]
  3. NAVELBINE [Concomitant]
  4. CISPLATIN [Concomitant]
  5. ANTI-INFLAMMATORY NOS (ANTI-INFLAMMATORY AGENT NOS) [Concomitant]

REACTIONS (2)
  - ANURIA [None]
  - RENAL FAILURE [None]
